FAERS Safety Report 7530052-1 (Version None)
Quarter: 2011Q2

REPORT INFORMATION
  Report Type: 
  Country: None (occurrence: None)
  Receive Date: 20110607
  Receipt Date: 20110524
  Transmission Date: 20111010
  Serious: Yes (Life-Threatening, Hospitalization)
  Sender: FDA-Public Use
  Company Number: PHHY2011US43645

PATIENT
  Sex: Female
  Weight: 99.32 kg

DRUGS (3)
  1. SANDOSTATIN LAR [Suspect]
     Indication: CARCINOID TUMOUR
     Dosage: 20 MG
     Dates: start: 20110407
  2. ANTIHYPERTENSIVE DRUGS [Concomitant]
  3. ANTIDEPRESSANTS [Concomitant]

REACTIONS (9)
  - CARDIOMEGALY [None]
  - TROPONIN INCREASED [None]
  - DYSPNOEA [None]
  - STRESS CARDIOMYOPATHY [None]
  - EJECTION FRACTION DECREASED [None]
  - CHEST DISCOMFORT [None]
  - CHEST PAIN [None]
  - DIZZINESS [None]
  - ASTHENIA [None]
